FAERS Safety Report 9505389 (Version 1)
Quarter: 2013Q1

REPORT INFORMATION
  Report Type: Spontaneous
  Country: US (occurrence: None)
  Receive Date: 20130220
  Receipt Date: 20130220
  Transmission Date: 20140127
  Serious: No
  Sender: FDA-Public Use
  Company Number: 1000040549

PATIENT
  Sex: Female

DRUGS (2)
  1. VIIBRYD (VILAZODONE HYDROCHLORIDE) [Suspect]
     Indication: DEPRESSION
  2. VIIBRYD (VILAZODONE HYDROCHLORIDE) [Suspect]
     Indication: ANXIETY

REACTIONS (10)
  - Depression [None]
  - Lymphadenopathy [None]
  - Nervousness [None]
  - Restlessness [None]
  - Irritability [None]
  - Palpitations [None]
  - Hyperhidrosis [None]
  - Burning sensation [None]
  - Anxiety [None]
  - Drug ineffective [None]
